FAERS Safety Report 21561203 (Version 3)
Quarter: 2024Q1

REPORT INFORMATION
  Report Type: Spontaneous
  Country: ES (occurrence: ES)
  Receive Date: 20221107
  Receipt Date: 20240213
  Transmission Date: 20240410
  Serious: Yes (Other)
  Sender: FDA-Public Use
  Company Number: ES-SAMSUNG BIOEPIS-SB-2022-27936

PATIENT
  Age: 26 Year
  Sex: Male

DRUGS (13)
  1. ADALIMUMAB [Suspect]
     Active Substance: ADALIMUMAB\ISOPROPYL ALCOHOL
     Indication: Alopecia scarring
     Dosage: WEEK ZERO
     Route: 058
  2. ADALIMUMAB [Suspect]
     Active Substance: ADALIMUMAB\ISOPROPYL ALCOHOL
     Dosage: WEEK TWO
     Route: 058
  3. ADALIMUMAB [Suspect]
     Active Substance: ADALIMUMAB\ISOPROPYL ALCOHOL
     Route: 058
  4. IXEKIZUMAB [Suspect]
     Active Substance: IXEKIZUMAB
     Indication: Alopecia scarring
     Dosage: AT WEEK ZERO
     Route: 058
  5. IXEKIZUMAB [Suspect]
     Active Substance: IXEKIZUMAB
     Dosage: AT WEEK TWO, FOUR, SIX, EIGHT, TEN, TWELVE
     Route: 058
  6. IXEKIZUMAB [Suspect]
     Active Substance: IXEKIZUMAB
     Dosage: FROM THE 16 WEEKS
     Route: 058
  7. CLOBETASOL [Suspect]
     Active Substance: CLOBETASOL
     Indication: Alopecia scarring
     Dosage: UNKNOWN
     Route: 061
  8. RIFAMPIN [Suspect]
     Active Substance: RIFAMPIN
     Indication: Alopecia scarring
     Dosage: UNKNOWN
     Route: 065
  9. CLINDAMYCIN [Suspect]
     Active Substance: CLINDAMYCIN
     Indication: Alopecia scarring
     Dosage: UNKNOWN
     Route: 065
  10. TRIAMCINOLONE [Suspect]
     Active Substance: TRIAMCINOLONE
     Indication: Alopecia scarring
     Dosage: UNKNOWN
     Route: 065
  11. DOXYCYCLINE [Suspect]
     Active Substance: DOXYCYCLINE
     Indication: Alopecia scarring
     Dosage: UNKNOWN
     Route: 048
  12. DAPSONE [Suspect]
     Active Substance: DAPSONE
     Indication: Alopecia scarring
     Dosage: UNKNOWN
     Route: 048
  13. ISOTRETINOIN [Suspect]
     Active Substance: ISOTRETINOIN
     Indication: Alopecia scarring
     Dosage: UNKNOWN
     Route: 065

REACTIONS (5)
  - Alopecia scarring [Recovering/Resolving]
  - Paradoxical drug reaction [Unknown]
  - Skin candida [Unknown]
  - Treatment failure [Unknown]
  - Off label use [Unknown]
